FAERS Safety Report 5168141-1 (Version None)
Quarter: 2006Q4

REPORT INFORMATION
  Report Type: 
  Country: None (occurrence: None)
  Receive Date: 20061208
  Receipt Date: 20061128
  Transmission Date: 20070319
  Serious: Yes (Hospitalization)
  Sender: FDA-Public Use
  Company Number: GB-AMGEN-UK201609

PATIENT
  Age: 1 Year
  Sex: Female

DRUGS (7)
  1. MIMPARA [Suspect]
     Indication: HYPERPARATHYROIDISM SECONDARY
     Route: 048
     Dates: start: 20060904, end: 20061017
  2. FOLIC ACID [Concomitant]
  3. NEORECORMON [Concomitant]
  4. ASCORBIC ACID [Concomitant]
  5. CALCIUM ACETATE [Concomitant]
  6. VITAMIN D [Concomitant]
  7. AMLODIPINE [Concomitant]
     Dates: end: 20060925

REACTIONS (1)
  - HYPOTENSION [None]
